FAERS Safety Report 21211064 (Version 4)
Quarter: 2023Q2

REPORT INFORMATION
  Report Type: Spontaneous
  Country: US (occurrence: US)
  Receive Date: 20220815
  Receipt Date: 20230425
  Transmission Date: 20230721
  Serious: No
  Sender: FDA-Public Use
  Company Number: US-DSJP-DSU-2022-128429

PATIENT
  Sex: Female

DRUGS (1)
  1. ENHERTU [Suspect]
     Active Substance: FAM-TRASTUZUMAB DERUXTECAN-NXKI
     Indication: Breast cancer metastatic
     Dosage: UNK
     Route: 065

REACTIONS (4)
  - Nausea [Unknown]
  - Fatigue [Unknown]
  - Abdominal discomfort [Unknown]
  - Pain [Unknown]
